FAERS Safety Report 14638722 (Version 1)
Quarter: 2018Q1

REPORT INFORMATION
  Report Type: Report from Study
  Country: None (occurrence: US)
  Receive Date: 20180315
  Receipt Date: 20180315
  Transmission Date: 20180509
  Serious: Yes (Hospitalization, Other)
  Sender: FDA-Public Use
  Company Number: US-ABBVIE-18K-163-2273913-00

PATIENT
  Age: 70 Year
  Sex: Female

DRUGS (6)
  1. SAMBUCUS [Concomitant]
     Indication: IMMUNE ENHANCEMENT THERAPY
  2. RANITIDINE. [Concomitant]
     Active Substance: RANITIDINE
     Indication: HYPERSENSITIVITY
  3. COLLOIDAL SILVER [Concomitant]
     Active Substance: SILVER
     Indication: IMMUNE ENHANCEMENT THERAPY
  4. HUMIRA [Suspect]
     Active Substance: ADALIMUMAB
     Indication: CROHN^S DISEASE
     Route: 058
     Dates: start: 200606
  5. FERREX [Concomitant]
     Active Substance: FERRIC POLYSACCHARIDE COMPLEX
     Indication: ANAEMIA
  6. VITAMIN B12 [Concomitant]
     Active Substance: CYANOCOBALAMIN
     Indication: PRODUCT USED FOR UNKNOWN INDICATION

REACTIONS (6)
  - Sinus congestion [Unknown]
  - Impetigo [Unknown]
  - Seborrhoeic dermatitis [Unknown]
  - Nasal turbinate hypertrophy [Recovered/Resolved]
  - Anaemia [Unknown]
  - Cough [Unknown]

NARRATIVE: CASE EVENT DATE: 201710
